FAERS Safety Report 17946260 (Version 1)
Quarter: 2020Q2

REPORT INFORMATION
  Report Type: Spontaneous
  Country: US (occurrence: US)
  Receive Date: 20200625
  Receipt Date: 20200625
  Transmission Date: 20200714
  Serious: No
  Sender: FDA-Public Use
  Company Number: US-VIRTUS PHARMACEUTICALS, LLC-2019VTS00038

PATIENT
  Sex: Female

DRUGS (2)
  1. PROGESTERONE. [Suspect]
     Active Substance: PROGESTERONE
     Dosage: 100 MG
  2. PROGESTERONE. [Suspect]
     Active Substance: PROGESTERONE
     Dosage: 200 MG

REACTIONS (3)
  - Migraine [Recovered/Resolved]
  - Product substitution issue [Unknown]
  - Nausea [Not Recovered/Not Resolved]
